FAERS Safety Report 4564586-9 (Version None)
Quarter: 2005Q1

REPORT INFORMATION
  Report Type: 
  Country: None (occurrence: None)
  Receive Date: 20050126
  Receipt Date: 20050114
  Transmission Date: 20050727
  Serious: Yes (Hospitalization)
  Sender: FDA-Public Use
  Company Number: 2004091185

PATIENT
  Sex: Male
  Weight: 84 kg

DRUGS (3)
  1. NEURONTIN [Suspect]
     Indication: POLYNEUROPATHY
     Dosage: 600 MG (200 MG, 3 IN 1 D), ORAL
     Route: 048
     Dates: start: 20040301, end: 20040315
  2. MADOPAR (BENSERAZIDE HYDROCHLORIDE, LEVODOPA) [Concomitant]
  3. CYANOCOBALAMIN (CYANOCOBALAMIN) [Concomitant]

REACTIONS (4)
  - HEADACHE [None]
  - PHLEBOTHROMBOSIS [None]
  - RETINAL VASCULAR THROMBOSIS [None]
  - VITREOUS HAEMORRHAGE [None]
